FAERS Safety Report 8457012-0 (Version None)
Quarter: 2012Q2

REPORT INFORMATION
  Report Type: 
  Country: None (occurrence: None)
  Receive Date: 20120621
  Receipt Date: 20120618
  Transmission Date: 20120825
  Serious: Yes (Death)
  Sender: FDA-Public Use
  Company Number: US-B.I. PHARMACEUTICALS,INC./RIDGEFIELD-2012-BP-13602BP

PATIENT
  Age: 82 Year
  Sex: Female

DRUGS (5)
  1. DIOVAN [Concomitant]
     Indication: HYPERTENSION
  2. TRADJENTA [Suspect]
     Indication: GLYCOSYLATED HAEMOGLOBIN INCREASED
     Dosage: 5 MG
  3. TRADJENTA [Suspect]
     Indication: RENAL FUNCTION TEST ABNORMAL
  4. ULORIC [Concomitant]
     Indication: GOUT
  5. CHEMOTHERAPY [Concomitant]
     Indication: BLADDER CANCER

REACTIONS (3)
  - DEEP VEIN THROMBOSIS [None]
  - PULMONARY EMBOLISM [None]
  - GALLBLADDER DISORDER [None]
